FAERS Safety Report 8145511-0 (Version None)
Quarter: 2012Q1

REPORT INFORMATION
  Report Type: 
  Country: None (occurrence: None)
  Receive Date: 20120217
  Receipt Date: 20110307
  Transmission Date: 20120608
  Serious: No
  Sender: FDA-Public Use
  Company Number: US-ABBOTT-11P-163-0709814-00

PATIENT
  Sex: Male
  Weight: 99.88 kg

DRUGS (3)
  1. LEXAPRO [Concomitant]
     Indication: DEPRESSION
  2. ALPRAZOLAM [Concomitant]
     Indication: ANXIETY
  3. SIMCOR [Suspect]
     Indication: HIGH DENSITY LIPOPROTEIN DECREASED
     Dosage: 500/20MG TWO TABS AT BEDTIME
     Route: 048
     Dates: start: 20090101

REACTIONS (1)
  - FLUSHING [None]
